FAERS Safety Report 14220895 (Version 1)
Quarter: 2017Q4

REPORT INFORMATION
  Report Type: Spontaneous
  Country: US (occurrence: US)
  Receive Date: 20171124
  Receipt Date: 20171124
  Transmission Date: 20180321
  Serious: Yes (Hospitalization)
  Sender: FDA-Public Use
  Company Number: US-ELI_LILLY_AND_COMPANY-US201711006095

PATIENT
  Sex: Male

DRUGS (1)
  1. TALTZ [Suspect]
     Active Substance: IXEKIZUMAB
     Indication: PSORIASIS
     Dosage: 80 MG, UNKNOWN
     Route: 058
     Dates: start: 2014

REACTIONS (6)
  - Visual impairment [Not Recovered/Not Resolved]
  - Drug dose omission [Not Recovered/Not Resolved]
  - Stress [Not Recovered/Not Resolved]
  - Epistaxis [Recovered/Resolved]
  - Psoriasis [Not Recovered/Not Resolved]
  - Inappropriate schedule of drug administration [Unknown]
